FAERS Safety Report 4583231-X (Version None)
Quarter: 2005Q1

REPORT INFORMATION
  Report Type: 
  Country: None (occurrence: None)
  Receive Date: 20050125
  Receipt Date: 20040826
  Transmission Date: 20050727
  Serious: No
  Sender: FDA-Public Use
  Company Number: USA030845762

PATIENT
  Age: 79 Year
  Sex: Female
  Weight: 48 kg

DRUGS (6)
  1. FORTEO [Suspect]
     Indication: OSTEOPOROSIS
     Dosage: 20 UG IN THE EVENING
     Dates: start: 20030819
  2. AREDIA [Concomitant]
  3. CALCIUM AND VITAMIN D [Concomitant]
  4. PROTONIX [Concomitant]
  5. VITAMINS [Concomitant]
  6. NULEV (HYOSCYAMINE SULFATE) [Concomitant]

REACTIONS (12)
  - ASTHENIA [None]
  - BACK PAIN [None]
  - BALANCE DISORDER [None]
  - DIZZINESS [None]
  - EAR PAIN [None]
  - HEADACHE [None]
  - HYPOAESTHESIA [None]
  - HYPOGLYCAEMIA [None]
  - INSOMNIA [None]
  - MUSCLE SPASMS [None]
  - NAUSEA [None]
  - RHINORRHOEA [None]
